FAERS Safety Report 24795998 (Version 2)
Quarter: 2025Q1

REPORT INFORMATION
  Report Type: Spontaneous
  Country: FR (occurrence: FR)
  Receive Date: 20250101
  Receipt Date: 20250204
  Transmission Date: 20250408
  Serious: Yes (Death, Hospitalization)
  Sender: ROCHE
  Company Number: FR-ROCHE-10000167457

PATIENT
  Age: 76 Year
  Sex: Male
  Weight: 48 kg

DRUGS (4)
  1. GLOFITAMAB [Suspect]
     Active Substance: GLOFITAMAB
     Indication: Diffuse large B-cell lymphoma refractory
     Route: 040
     Dates: start: 20240902
  2. GLOFITAMAB [Suspect]
     Active Substance: GLOFITAMAB
     Route: 040
  3. GLOFITAMAB [Suspect]
     Active Substance: GLOFITAMAB
     Route: 040
  4. GAZYVA [Suspect]
     Active Substance: OBINUTUZUMAB
     Indication: Diffuse large B-cell lymphoma refractory
     Route: 065

REACTIONS (2)
  - Dyspnoea [Fatal]
  - Sepsis [Fatal]
